FAERS Safety Report 23654372 (Version 1)
Quarter: 2024Q1

REPORT INFORMATION
  Report Type: Report from Study
  Country: HU (occurrence: HU)
  Receive Date: 20240320
  Receipt Date: 20240320
  Transmission Date: 20240409
  Serious: Yes (Death)
  Sender: FDA-Public Use
  Company Number: HU-ABBVIE-5682188

PATIENT
  Age: 65 Year
  Sex: Male

DRUGS (9)
  1. CARBIDOPA\LEVODOPA [Suspect]
     Active Substance: CARBIDOPA\LEVODOPA
     Indication: Parkinson^s disease
     Dosage: MORNING DOSE: 7.5 ML; CONTINUOUS DOSE: 4.5 ML/HOUR; EXTRA DOSE: 2.3 ML
     Route: 050
     Dates: start: 20230222
  2. CARBIDOPA\LEVODOPA [Suspect]
     Active Substance: CARBIDOPA\LEVODOPA
  3. PANTOPRAZOLE SODIUM [Concomitant]
     Active Substance: PANTOPRAZOLE SODIUM
     Indication: Prophylaxis
     Dosage: FORM STRENGTH: 40 MILLIGRAM
     Route: 048
  4. CLOZAPINE [Concomitant]
     Active Substance: CLOZAPINE
     Indication: Depression
     Dosage: 12.5 MILLIGRAM?FORM STRENGTH: 25 MILLIGRAM?FREQUENCY TEXT: HALF TABLET DAILY
     Route: 048
  5. ASPIRIN [Concomitant]
     Active Substance: ASPIRIN
     Indication: Prophylaxis
     Dosage: FORM STRENGTH: 100 MILLIGRAM
     Route: 048
  6. COMBIGAN [Concomitant]
     Active Substance: BRIMONIDINE TARTRATE\TIMOLOL MALEATE
     Indication: Glaucoma
     Dosage: 2 MG BRIMONIDIN, 5 MG TIMOLOL / 1 ML SOLUTION,?FREQUENCY TEXT: 1 DROP TWICE DAILY
     Route: 047
  7. RIVOTRIL [Concomitant]
     Active Substance: CLONAZEPAM
     Indication: Affective disorder
     Dosage: FORM STRENGTH: 0.5 MILLIGRAM
     Route: 048
  8. BENSERAZIDE HYDROCHLORIDE\LEVODOPA [Concomitant]
     Active Substance: BENSERAZIDE HYDROCHLORIDE\LEVODOPA
     Indication: Parkinson^s disease
     Dosage: 200 MG LEVODOPA, 50 MG BENSERAZIDE / TABLET
     Route: 048
     Dates: start: 20240223, end: 20240227
  9. ATORVASTATIN CALCIUM [Concomitant]
     Active Substance: ATORVASTATIN CALCIUM
     Indication: Blood cholesterol increased
     Dosage: FORM STRENGTH: 20 MILLIGRAM
     Route: 048

REACTIONS (3)
  - Death [Fatal]
  - Mobility decreased [Not Recovered/Not Resolved]
  - Dementia [Unknown]

NARRATIVE: CASE EVENT DATE: 20240201
